FAERS Safety Report 10232971 (Version 1)
Quarter: 2014Q2

REPORT INFORMATION
  Report Type: Spontaneous
  Country: CA (occurrence: CA)
  Receive Date: 20140612
  Receipt Date: 20140612
  Transmission Date: 20141212
  Serious: Yes (Life-Threatening)
  Sender: FDA-Public Use
  Company Number: CA-B.I. PHARMACEUTICALS,INC./RIDGEFIELD-2014-BI-26063CN

PATIENT
  Age: 51 Year
  Sex: Female
  Weight: 99 kg

DRUGS (7)
  1. MICARDIS [Suspect]
     Indication: PRODUCT USED FOR UNKNOWN INDICATION
     Dosage: 80 MG
     Route: 048
  2. DICLOFENAC [Concomitant]
     Route: 065
  3. FERROUS SULPHATE [Concomitant]
     Route: 065
  4. LACTOBACILLUS [Concomitant]
     Route: 065
  5. LOSEC [Concomitant]
     Route: 065
  6. MACROBID [Concomitant]
     Route: 065
  7. VITAMIN C [Concomitant]
     Route: 065

REACTIONS (9)
  - Alanine aminotransferase increased [Unknown]
  - Aspartate aminotransferase increased [Unknown]
  - Blood alkaline phosphatase increased [Unknown]
  - Blood lactate dehydrogenase increased [Unknown]
  - Fatigue [Unknown]
  - Gamma-glutamyltransferase increased [Unknown]
  - Hepatitis [Unknown]
  - Hyperbilirubinaemia [Unknown]
  - Jaundice [Unknown]
